FAERS Safety Report 19655340 (Version 1)
Quarter: 2021Q3

REPORT INFORMATION
  Report Type: Spontaneous
  Country: US (occurrence: US)
  Receive Date: 20210803
  Receipt Date: 20210803
  Transmission Date: 20211014
  Serious: No
  Sender: FDA-Public Use
  Company Number: None

PATIENT
  Age: 26 Year
  Sex: Male
  Weight: 64.35 kg

DRUGS (2)
  1. LEVOFLOXACIN. [Suspect]
     Active Substance: LEVOFLOXACIN
     Indication: EPIDIDYMITIS
     Dosage: ?          QUANTITY:10 TABLET(S);?
     Route: 048
     Dates: start: 20210802, end: 20210803
  2. TOPICAL HYDROCORTISONE 2.5% [Concomitant]

REACTIONS (6)
  - Sleep disorder [None]
  - Tendon pain [None]
  - Arthralgia [None]
  - Heart rate irregular [None]
  - Anxiety [None]
  - Skin burning sensation [None]

NARRATIVE: CASE EVENT DATE: 20210802
